FAERS Safety Report 16011735 (Version 3)
Quarter: 2020Q4

REPORT INFORMATION
  Report Type: Spontaneous
  Country: US (occurrence: US)
  Receive Date: 20190227
  Receipt Date: 20201228
  Transmission Date: 20210113
  Serious: No
  Sender: FDA-Public Use
  Company Number: US-PFIZER INC-2019082293

PATIENT
  Age: 59 Year
  Sex: Female
  Weight: 71.67 kg

DRUGS (1)
  1. SERTRALINE HCL [Suspect]
     Active Substance: SERTRALINE HYDROCHLORIDE
     Dosage: 100 MG, 1X/DAY
     Route: 048

REACTIONS (2)
  - Feeling abnormal [Recovered/Resolved]
  - Drug ineffective [Unknown]
